FAERS Safety Report 9497118 (Version 1)
Quarter: 2013Q3

REPORT INFORMATION
  Report Type: Spontaneous
  Country: US (occurrence: US)
  Receive Date: 20130904
  Receipt Date: 20130904
  Transmission Date: 20140515
  Serious: No
  Sender: FDA-Public Use
  Company Number: US-AMGEN-USASP2013055051

PATIENT
  Age: 84 Year
  Sex: Female

DRUGS (2)
  1. ENBREL [Suspect]
     Indication: RHEUMATOID ARTHRITIS
     Dosage: 50 MG, QWK
     Route: 065
     Dates: start: 20130101
  2. PREDNISONE [Concomitant]
     Dosage: 5 MG, QD TOOK FOR 2 YEARS
     Route: 048

REACTIONS (2)
  - Finger deformity [Not Recovered/Not Resolved]
  - Pain in extremity [Not Recovered/Not Resolved]
